FAERS Safety Report 16035633 (Version 1)
Quarter: 2019Q1

REPORT INFORMATION
  Report Type: Spontaneous
  Country: AT (occurrence: AT)
  Receive Date: 20190305
  Receipt Date: 20190305
  Transmission Date: 20190418
  Serious: Yes (Other)
  Sender: FDA-Public Use
  Company Number: AT-PFIZER INC-2019095735

PATIENT
  Sex: Male
  Weight: 73 kg

DRUGS (8)
  1. REVLIMID [Suspect]
     Active Substance: LENALIDOMIDE
     Indication: DIFFUSE LARGE B-CELL LYMPHOMA
     Dosage: UNK
     Route: 065
     Dates: start: 20181213
  2. DOXORUBICIN HCL [Suspect]
     Active Substance: DOXORUBICIN HYDROCHLORIDE
     Dosage: 3 X WEEKLY, 2 CYCLES
     Route: 065
     Dates: start: 201808
  3. DOXORUBICIN HCL [Suspect]
     Active Substance: DOXORUBICIN HYDROCHLORIDE
     Dosage: 3 X WEEKLY, 6 CYCLES
     Route: 065
     Dates: start: 201804
  4. PREDNISON [Suspect]
     Active Substance: PREDNISONE
     Indication: DIFFUSE LARGE B-CELL LYMPHOMA
     Dosage: 3 X WEEKLY, 8 CYCLES
     Route: 065
     Dates: start: 201804
  5. RITUXIMAB. [Suspect]
     Active Substance: RITUXIMAB
     Dosage: 3 X WEEKLY, 8 CYCLES
     Route: 065
     Dates: start: 201804
  6. RITUXIMAB. [Suspect]
     Active Substance: RITUXIMAB
     Indication: DIFFUSE LARGE B-CELL LYMPHOMA
     Dosage: UNK
     Route: 065
     Dates: start: 20181213
  7. VINCRISTIN PFIZER [Suspect]
     Active Substance: VINCRISTINE SULFATE
     Indication: DIFFUSE LARGE B-CELL LYMPHOMA
     Dosage: 3 X WEEKLY, 3 CYCLES
     Route: 065
     Dates: start: 201804
  8. CYCLOPHOSPHAMID [Suspect]
     Active Substance: CYCLOPHOSPHAMIDE
     Indication: DIFFUSE LARGE B-CELL LYMPHOMA
     Dosage: 3 X WEEKLY, 8 CYCLES, 80% DOSE REDUCTION (RENAL INSUFFICIENCY)
     Route: 065
     Dates: start: 201804

REACTIONS (1)
  - Polyneuropathy [Unknown]
